FAERS Safety Report 22836568 (Version 2)
Quarter: 2024Q2

REPORT INFORMATION
  Report Type: Report from Study
  Country: CA (occurrence: CA)
  Receive Date: 20230818
  Receipt Date: 20240405
  Transmission Date: 20240715
  Serious: Yes (Other)
  Sender: FDA-Public Use
  Company Number: CA-TAKEDA-2020TUS048103

PATIENT
  Sex: Female

DRUGS (3)
  1. HUMAN IMMUNOGLOBULIN G [Suspect]
     Active Substance: HUMAN IMMUNOGLOBULIN G
     Indication: Secondary immunodeficiency
     Dosage: 14 GRAM, 1/WEEK
     Route: 058
     Dates: start: 20180816
  2. HUMAN IMMUNOGLOBULIN G [Suspect]
     Active Substance: HUMAN IMMUNOGLOBULIN G
     Dosage: UNK UNK, 1/WEEK
     Route: 058
  3. HIZENTRA [Concomitant]
     Active Substance: HUMAN IMMUNOGLOBULIN G
     Dosage: UNK
     Route: 065
     Dates: start: 20130101

REACTIONS (6)
  - Pneumonia [Recovered/Resolved]
  - COVID-19 [Recovered/Resolved]
  - Respiratory syncytial virus infection [Recovered/Resolved]
  - Infusion site discharge [Recovered/Resolved]
  - Brain fog [Not Recovered/Not Resolved]
  - Post procedural complication [Not Recovered/Not Resolved]
